FAERS Safety Report 13498081 (Version 6)
Quarter: 2017Q4

REPORT INFORMATION
  Report Type: Spontaneous
  Country: JP (occurrence: JP)
  Receive Date: 20170501
  Receipt Date: 20171106
  Transmission Date: 20180320
  Serious: Yes (Life-Threatening, Hospitalization)
  Sender: FDA-Public Use
  Company Number: JP-ROCHE-1911281

PATIENT
  Age: 42 Year
  Sex: Male
  Weight: 78 kg

DRUGS (2)
  1. XELODA [Suspect]
     Active Substance: CAPECITABINE
     Indication: RECTAL CANCER
     Dosage: 14 DAYS ADMINISTRATION FOLLOWED BY 7 DAYS REST
     Route: 048
     Dates: start: 20170227, end: 20170312
  2. OXALIPLATIN. [Suspect]
     Active Substance: OXALIPLATIN
     Indication: RECTAL CANCER
     Dosage: SINGLE DOSE ADMINISTRATION
     Route: 041
     Dates: start: 20170227, end: 20170227

REACTIONS (10)
  - Vomiting [Unknown]
  - Decreased appetite [Recovered/Resolved]
  - Diarrhoea [Unknown]
  - Malaise [Recovered/Resolved]
  - Blood creatinine increased [Recovered/Resolved]
  - Disseminated intravascular coagulation [Recovered/Resolved]
  - Nausea [Unknown]
  - Circulatory collapse [Recovered/Resolved]
  - Febrile neutropenia [Recovered/Resolved]
  - Platelet count decreased [Recovered/Resolved]

NARRATIVE: CASE EVENT DATE: 20170310
